FAERS Safety Report 9088955 (Version 2)
Quarter: 2013Q1

REPORT INFORMATION
  Report Type: Spontaneous
  Country: IT (occurrence: IT)
  Receive Date: 20130201
  Receipt Date: 20130305
  Transmission Date: 20140127
  Serious: Yes (Hospitalization, Other)
  Sender: FDA-Public Use
  Company Number: IT-PFIZER INC-2013043192

PATIENT
  Age: 59 Year
  Sex: Male

DRUGS (3)
  1. LYRICA [Suspect]
     Dosage: 2250 MG, TOTAL DOSE
     Route: 048
     Dates: start: 20130106, end: 20130106
  2. TOLEP [Suspect]
     Dosage: 18000 MG, TOTAL DOSE
     Route: 048
     Dates: start: 20130106, end: 20130106
  3. TEGRETOL [Suspect]
     Dosage: 5400 MG, TOTAL DOSE
     Route: 048
     Dates: start: 20130106, end: 20130106

REACTIONS (3)
  - Drug abuse [Recovered/Resolved]
  - Coma [Recovered/Resolved]
  - Respiratory acidosis [Recovered/Resolved]
